FAERS Safety Report 8343953-1 (Version None)
Quarter: 2012Q2

REPORT INFORMATION
  Report Type: 
  Country: None (occurrence: None)
  Receive Date: 20120508
  Receipt Date: 20101104
  Transmission Date: 20120825
  Serious: Yes (Other)
  Sender: FDA-Public Use
  Company Number: US-TEVA-2010005786

PATIENT
  Sex: Female
  Weight: 52 kg

DRUGS (8)
  1. TYLENOL (CAPLET) [Concomitant]
     Indication: PREMEDICATION
  2. RITUXAN [Concomitant]
     Indication: NON-HODGKIN'S LYMPHOMA
     Route: 042
     Dates: start: 20100902
  3. COMPAZINE [Concomitant]
     Indication: PREMEDICATION
  4. ATENOLOL [Concomitant]
  5. XANAX [Concomitant]
  6. BENADRYL [Concomitant]
     Indication: PREMEDICATION
  7. FLONASE [Concomitant]
  8. TREANDA [Suspect]
     Indication: NON-HODGKIN'S LYMPHOMA
     Route: 042
     Dates: start: 20100902, end: 20101001

REACTIONS (1)
  - THROMBOCYTOPENIA [None]
